FAERS Safety Report 22279505 (Version 1)
Quarter: 2023Q2

REPORT INFORMATION
  Report Type: Spontaneous
  Country: US (occurrence: None)
  Receive Date: 20230502
  Receipt Date: 20230502
  Transmission Date: 20230722
  Serious: Yes (Death, Hospitalization)
  Sender: FDA-Public Use
  Company Number: None

PATIENT
  Age: 65 Year
  Sex: Female
  Weight: 72 kg

DRUGS (6)
  1. XELODA [Suspect]
     Active Substance: CAPECITABINE
     Indication: Breast cancer
     Dosage: 5 TABLETS TWICE A DAY ORAL?
     Route: 048
     Dates: start: 20230104, end: 20230118
  2. LAMOTRIGINE [Concomitant]
     Active Substance: LAMOTRIGINE
  3. PANTOPRAZOLE [Concomitant]
     Active Substance: PANTOPRAZOLE
  4. CARBIDOPA\LEVODOPA [Concomitant]
     Active Substance: CARBIDOPA\LEVODOPA
  5. PREDNISONE [Concomitant]
     Active Substance: PREDNISONE
  6. ATROPINE SULFATE\DIPHENOXYLATE HYDROCHLORIDE [Concomitant]
     Active Substance: ATROPINE SULFATE\DIPHENOXYLATE HYDROCHLORIDE

REACTIONS (4)
  - Diarrhoea [None]
  - Asthenia [None]
  - Illness [None]
  - Renal vascular thrombosis [None]

NARRATIVE: CASE EVENT DATE: 20230117
